FAERS Safety Report 4534265-2 (Version None)
Quarter: 2004Q4

REPORT INFORMATION
  Report Type: 
  Country: None (occurrence: None)
  Receive Date: 20041214
  Receipt Date: 20040824
  Transmission Date: 20050328
  Serious: No
  Sender: FDA-Public Use
  Company Number: 2004231376US

PATIENT

DRUGS (1)
  1. BEXTRA [Suspect]
     Indication: MUSCLE STRAIN
     Dosage: 10 MG, QD

REACTIONS (2)
  - RASH [None]
  - SWELLING [None]
